FAERS Safety Report 4330817-3 (Version None)
Quarter: 2004Q1

REPORT INFORMATION
  Report Type: 
  Country: None (occurrence: None)
  Receive Date: 20040331
  Receipt Date: 20040311
  Transmission Date: 20041129
  Serious: Yes (Hospitalization, Other)
  Sender: FDA-Public Use
  Company Number: USA040258085

PATIENT
  Age: 65 Year
  Sex: Female
  Weight: 76 kg

DRUGS (2)
  1. FORTEO [Suspect]
     Indication: OSTEOPOROSIS
     Dosage: 20 UG/1 DAY
     Dates: start: 20030403
  2. PREDNISONE [Concomitant]

REACTIONS (4)
  - FALL [None]
  - HAND FRACTURE [None]
  - JOINT RANGE OF MOTION DECREASED [None]
  - RADIUS FRACTURE [None]
